FAERS Safety Report 17843529 (Version 1)
Quarter: 2020Q2

REPORT INFORMATION
  Report Type: Report from Study
  Country: CH (occurrence: CH)
  Receive Date: 20200531
  Receipt Date: 20200531
  Transmission Date: 20200714
  Serious: Yes (Death)
  Sender: FDA-Public Use
  Company Number: CH-ROCHE-2600715

PATIENT
  Age: 77 Year
  Sex: Male
  Weight: 63 kg

DRUGS (6)
  1. XELODA [Suspect]
     Active Substance: CAPECITABINE
     Indication: ADENOCARCINOMA OF COLON
     Route: 048
     Dates: start: 20200218, end: 20200323
  2. IMODIUM [Concomitant]
     Active Substance: LOPERAMIDE HYDROCHLORIDE
     Indication: DIARRHOEA
     Route: 048
     Dates: start: 20200326
  3. ONDANSETRON MEPHA [ONDANSETRON] [Concomitant]
     Indication: VOMITING
  4. OPIUM TINCTURE [Concomitant]
     Active Substance: MORPHINE
     Route: 048
     Dates: start: 20200329
  5. BUSCOPAN [Concomitant]
     Active Substance: BUTYLSCOPOLAMINE BROMIDE
     Indication: ABDOMINAL PAIN
     Route: 048
     Dates: start: 20200326
  6. ONDANSETRON MEPHA [ONDANSETRON] [Concomitant]
     Indication: NAUSEA
     Route: 048
     Dates: start: 20200327

REACTIONS (4)
  - Vomiting [Fatal]
  - Diarrhoea [Fatal]
  - Oesophagitis [Fatal]
  - Pneumonia aspiration [Fatal]

NARRATIVE: CASE EVENT DATE: 202003
